FAERS Safety Report 23182905 (Version 1)
Quarter: 2023Q4

REPORT INFORMATION
  Report Type: Spontaneous
  Country: US (occurrence: None)
  Receive Date: 20231114
  Receipt Date: 20231114
  Transmission Date: 20240110
  Serious: Yes (Life-Threatening, Hospitalization)
  Sender: FDA-Public Use
  Company Number: None

PATIENT
  Age: 31 Year
  Sex: Male
  Weight: 65.8 kg

DRUGS (1)
  1. CLOZAPINE [Suspect]
     Active Substance: CLOZAPINE
     Indication: Schizophrenia
     Dates: start: 20231014, end: 20231030

REACTIONS (8)
  - Drug titration error [None]
  - Pyrexia [None]
  - Tachycardia [None]
  - Hyperhidrosis [None]
  - Influenza like illness [None]
  - Troponin increased [None]
  - C-reactive protein increased [None]
  - Myocarditis [None]

NARRATIVE: CASE EVENT DATE: 20231030
